FAERS Safety Report 7069512-9 (Version None)
Quarter: 2010Q4

REPORT INFORMATION
  Report Type: 
  Country: None (occurrence: None)
  Receive Date: 20101028
  Receipt Date: 20091208
  Transmission Date: 20110411
  Serious: Yes (Other)
  Sender: FDA-Public Use
  Company Number: US-WYE-H12233509

PATIENT
  Age: 62 Year
  Sex: Female

DRUGS (13)
  1. AMIODARONE [Suspect]
     Indication: ATRIAL FIBRILLATION
     Route: 048
     Dates: start: 20090709, end: 20091005
  2. MULTAQ [Suspect]
     Indication: ATRIAL FIBRILLATION
     Route: 048
     Dates: start: 20091005
  3. MULTAQ [Suspect]
     Indication: THROMBOSIS PROPHYLAXIS
  4. ASPIRIN [Concomitant]
     Dosage: DOSE UNKNOWN
     Route: 065
     Dates: start: 20080903
  5. LIPITOR [Concomitant]
     Dosage: DOSE UNKNOWN
     Route: 065
     Dates: start: 20081106
  6. METFORMIN [Concomitant]
     Dosage: DOSE UNKNOWN
     Route: 065
  7. METOPROLOL SUCCINATE [Concomitant]
     Dosage: DOSE UNKNOWN
     Route: 065
     Dates: start: 20081106
  8. LASIX [Concomitant]
     Dosage: DOSE UNKNOWN
     Route: 065
     Dates: start: 20081106
  9. COUMADIN [Suspect]
     Indication: THROMBOSIS PROPHYLAXIS
     Route: 048
     Dates: end: 20091005
  10. COUMADIN [Suspect]
     Route: 048
     Dates: start: 20091005, end: 20091012
  11. COUMADIN [Suspect]
     Dosage: DOSE UNKNOWN
     Route: 048
     Dates: start: 20091001, end: 20091102
  12. COUMADIN [Suspect]
     Dosage: DOSE UNKNOWN
     Route: 048
     Dates: start: 20091101
  13. GLIPIZIDE [Concomitant]
     Dosage: DOSE UNKNOWN
     Route: 065

REACTIONS (1)
  - INTERNATIONAL NORMALISED RATIO INCREASED [None]
